FAERS Safety Report 4414668-7 (Version None)
Quarter: 2004Q3

REPORT INFORMATION
  Report Type: 
  Country: None (occurrence: None)
  Receive Date: 20040729
  Receipt Date: 20040716
  Transmission Date: 20050211
  Serious: Yes (Death, Other)
  Sender: FDA-Public Use
  Company Number: US-JNJFOC-20040702260

PATIENT
  Age: 78 Year
  Sex: Male
  Weight: 80.2867 kg

DRUGS (1)
  1. REMICADE [Suspect]
     Indication: CROHN'S DISEASE
     Dosage: INTRAVENOUS

REACTIONS (4)
  - HEPATIC CIRRHOSIS [None]
  - HEPATIC STEATOSIS [None]
  - HEPATORENAL FAILURE [None]
  - PERITONITIS BACTERIAL [None]
